FAERS Safety Report 19890590 (Version 1)
Quarter: 2021Q3

REPORT INFORMATION
  Report Type: Spontaneous
  Country: JP (occurrence: JP)
  Receive Date: 20210928
  Receipt Date: 20210928
  Transmission Date: 20211014
  Serious: Yes (Other)
  Sender: FDA-Public Use
  Company Number: NVSJ2021JP014327

PATIENT
  Age: 88 Year
  Sex: Female

DRUGS (1)
  1. ZOLEDRONIC ACID [Suspect]
     Active Substance: ZOLEDRONIC ACID
     Indication: METASTASES TO BONE
     Dosage: UNK
     Route: 041

REACTIONS (3)
  - Pathological fracture [Unknown]
  - Osteonecrosis of jaw [Unknown]
  - Jaw fracture [Unknown]

NARRATIVE: CASE EVENT DATE: 201808
